FAERS Safety Report 8978377 (Version 4)
Quarter: 2013Q2

REPORT INFORMATION
  Report Type: Report from Study
  Country: BG (occurrence: BG)
  Receive Date: 20121221
  Receipt Date: 20130416
  Transmission Date: 20140414
  Serious: Yes (Hospitalization)
  Sender: FDA-Public Use
  Company Number: BG-BRISTOL-MYERS SQUIBB COMPANY-17209255

PATIENT
  Age: 39 Year
  Sex: Male

DRUGS (1)
  1. ARIPIPRAZOLE IM DEPOT [Suspect]
     Indication: SCHIZOPHRENIA
     Route: 030
     Dates: start: 20111129, end: 20121108

REACTIONS (1)
  - Psychotic disorder [Recovered/Resolved]
